FAERS Safety Report 10369460 (Version 1)
Quarter: 2014Q3

REPORT INFORMATION
  Report Type: Spontaneous
  Country: BE (occurrence: BE)
  Receive Date: 20140807
  Receipt Date: 20140807
  Transmission Date: 20150326
  Serious: Yes (Other)
  Sender: FDA-Public Use
  Company Number: BE-BAXTER-2014BAX045012

PATIENT
  Age: 26 Year
  Sex: Female

DRUGS (1)
  1. MANNITOL 15% W/V VIAFLO, SOLUTION POUR PERFUSION [Suspect]
     Active Substance: MANNITOL
     Indication: PRODUCT USED FOR UNKNOWN INDICATION
     Route: 065

REACTIONS (6)
  - Streptococcus test positive [Unknown]
  - Disease progression [Unknown]
  - Hydrocephalus [Unknown]
  - Device related sepsis [Unknown]
  - Drug ineffective [Unknown]
  - Staphylococcus test positive [Unknown]
